FAERS Safety Report 14239101 (Version 2)
Quarter: 2017Q4

REPORT INFORMATION
  Report Type: Spontaneous
  Country: JP (occurrence: JP)
  Receive Date: 20171130
  Receipt Date: 20171222
  Transmission Date: 20180321
  Serious: Yes (Hospitalization)
  Sender: FDA-Public Use
  Company Number: JP-ASTRAZENECA-2017SF17234

PATIENT
  Age: 68 Year
  Sex: Male
  Weight: 61 kg

DRUGS (7)
  1. BRILINTA [Suspect]
     Active Substance: TICAGRELOR
     Indication: ANGINA UNSTABLE
     Route: 048
     Dates: start: 20171018, end: 20171022
  2. BAYASPIRIN [Concomitant]
     Active Substance: ASPIRIN
     Indication: ANGINA UNSTABLE
     Route: 048
     Dates: start: 20171018, end: 20171022
  3. BAKTAR [Concomitant]
     Active Substance: SULFAMETHOXAZOLE\TRIMETHOPRIM
     Indication: DRUG-INDUCED LIVER INJURY
     Dosage: DOSE UNKNOWN, EVERY DAY
     Route: 048
     Dates: start: 20171013
  4. MYSLEE [Concomitant]
     Active Substance: ZOLPIDEM TARTRATE
     Indication: INSOMNIA
     Route: 048
     Dates: start: 20170919
  5. PREDONINE [Concomitant]
     Active Substance: PREDNISOLONE
     Indication: DRUG-INDUCED LIVER INJURY
     Route: 048
     Dates: start: 20170911
  6. BAYASPIRIN [Concomitant]
     Active Substance: ASPIRIN
     Indication: ANGINA UNSTABLE
     Dates: start: 20170921, end: 20170929
  7. URSO [Concomitant]
     Active Substance: URSODIOL
     Indication: DRUG-INDUCED LIVER INJURY
     Route: 048
     Dates: start: 20170929

REACTIONS (1)
  - Liver disorder [Recovered/Resolved]

NARRATIVE: CASE EVENT DATE: 20171023
